FAERS Safety Report 20979870 (Version 2)
Quarter: 2022Q3

REPORT INFORMATION
  Report Type: Report from Study
  Country: BR (occurrence: BR)
  Receive Date: 20220620
  Receipt Date: 20220815
  Transmission Date: 20221026
  Serious: No
  Sender: FDA-Public Use
  Company Number: BR-CELLTRION INC.-2022BR009499

PATIENT

DRUGS (6)
  1. TRUXIMA [Suspect]
     Active Substance: RITUXIMAB-ABBS
     Indication: Systemic lupus erythematosus
     Dosage: 1000MG IN THE 1ST CICLE, 1000MG IN 2ND  CYCLE (15DAYS AFTER THE 1ST ONE) AND NEXT CYCLE 10 MONTHS LA
     Route: 042
  2. BUDESONIDE\FORMOTEROL FUMARATE [Concomitant]
     Active Substance: BUDESONIDE\FORMOTEROL FUMARATE
     Indication: Chronic obstructive pulmonary disease
     Dosage: 1 PILL EVERY DAY, (12 MCG / 400 MCG, DAILY, (START: APPROXIMATELY 3 YEARS)
     Route: 048
  3. CLONAZEPAM [Concomitant]
     Active Substance: CLONAZEPAM
     Dosage: 1 PILL EVERY NIGHT, (START: APPROXIMATELY 15 YEARS)
     Route: 048
  4. AMITRIPTYLINE [Concomitant]
     Active Substance: AMITRIPTYLINE
     Dosage: 2 PILL PER NIGHT, 1 PILL PER DAY, (START: APPROXIMATELY 7 YEARS)
     Route: 048
  5. CITALOPRAM [Concomitant]
     Active Substance: CITALOPRAM HYDROBROMIDE
     Dosage: 1 PILL EVERY DAY (START:APPROXIMATELY 3 YEARS)
     Route: 048
  6. PREDNISONE [Concomitant]
     Active Substance: PREDNISONE
     Indication: Pain
     Dosage: 5 MG IN CASE OF PAIN, TO HELP THE LUPUS TREATMENT

REACTIONS (5)
  - Erythema [Recovered/Resolved]
  - Fatigue [Recovered/Resolved]
  - Anxiety [Recovered/Resolved]
  - Injury [Recovered/Resolved]
  - Off label use [Unknown]
